FAERS Safety Report 8272027-3 (Version None)
Quarter: 2012Q2

REPORT INFORMATION
  Report Type: 
  Country: None (occurrence: None)
  Receive Date: 20120410
  Receipt Date: 20120328
  Transmission Date: 20120825
  Serious: Yes (Other)
  Sender: FDA-Public Use
  Company Number: CN-MYLANLABS-2012S1006933

PATIENT
  Age: 5 Month
  Sex: Male
  Weight: 8 kg

DRUGS (2)
  1. GRANISETRON [Suspect]
     Indication: ANALGESIC THERAPY
     Dosage: 0.5 MG/KG/DAY
     Route: 041
  2. TRAMADOL HCL [Suspect]
     Indication: ANALGESIC THERAPY
     Dosage: 0.2 MG/KG/H
     Route: 041

REACTIONS (1)
  - CONVULSION [None]
